FAERS Safety Report 5713974-3 (Version None)
Quarter: 2008Q2

REPORT INFORMATION
  Report Type: 
  Country: None (occurrence: None)
  Receive Date: 20080423
  Receipt Date: 20080305
  Transmission Date: 20081010
  Serious: No
  Sender: FDA-Public Use
  Company Number: US-BAYER-200816598NA

PATIENT
  Age: 33 Year
  Sex: Female

DRUGS (3)
  1. MIRENA [Suspect]
     Indication: CONTRACEPTION
     Route: 015
  2. VALTREX [Concomitant]
     Indication: HERPES VIRUS INFECTION
  3. MAXALT [Concomitant]
     Indication: MIGRAINE

REACTIONS (1)
  - VAGINAL HAEMORRHAGE [None]
